FAERS Safety Report 9904271 (Version 1)
Quarter: 2014Q1

REPORT INFORMATION
  Report Type: Spontaneous
  Country: FR (occurrence: FR)
  Receive Date: 20140218
  Receipt Date: 20140218
  Transmission Date: 20141002
  Serious: Yes (Hospitalization)
  Sender: FDA-Public Use
  Company Number: FR-ASTRAZENECA-2014SE10081

PATIENT
  Age: 16 Year
  Sex: Female

DRUGS (3)
  1. MOPRAL [Suspect]
     Route: 048
     Dates: start: 20140108, end: 20140120
  2. LOVENOX [Concomitant]
  3. TOPALGIC [Concomitant]
     Dosage: 50 MG X4/D

REACTIONS (2)
  - Pancreatitis acute [Recovering/Resolving]
  - Cholelithiasis [Unknown]
